FAERS Safety Report 15366094 (Version 2)
Quarter: 2018Q3

REPORT INFORMATION
  Report Type: Spontaneous
  Country: JP (occurrence: JP)
  Receive Date: 20180910
  Receipt Date: 20180917
  Transmission Date: 20181010
  Serious: Yes (Disabling)
  Sender: FDA-Public Use
  Company Number: PHJP2018JP015989

PATIENT
  Sex: Male

DRUGS (1)
  1. ILARIS [Suspect]
     Active Substance: CANAKINUMAB
     Indication: CRYOPYRIN ASSOCIATED PERIODIC SYNDROME
     Dosage: UNK
     Route: 058

REACTIONS (6)
  - Hypoacusis [Unknown]
  - Disturbance in attention [Unknown]
  - Therapeutic response decreased [Unknown]
  - Malaise [Unknown]
  - Arthralgia [Unknown]
  - Headache [Unknown]
